FAERS Safety Report 7299576-9 (Version None)
Quarter: 2011Q1

REPORT INFORMATION
  Report Type: 
  Country: None (occurrence: None)
  Receive Date: 20110217
  Receipt Date: 20110211
  Transmission Date: 20110831
  Serious: Yes (Hospitalization)
  Sender: FDA-Public Use
  Company Number: GB-AMGEN-GBRSP2011002196

PATIENT
  Age: 62 Year
  Sex: Female
  Weight: 100 kg

DRUGS (4)
  1. CYCLOPHOSPHAMIDE [Concomitant]
     Indication: BREAST CANCER
     Dosage: 1000 MG, Q3WK
     Route: 058
     Dates: start: 20110105, end: 20110203
  2. NEULASTA [Suspect]
     Indication: CHEMOTHERAPY
     Dosage: 6 MG, ONE TIME DOSE
     Route: 058
     Dates: start: 20110106
  3. EPIRUBICIN [Concomitant]
     Indication: BREAST CANCER
     Dosage: 200 MG, Q3WK
     Route: 058
     Dates: start: 20110105, end: 20110203
  4. FLUOROURACIL [Concomitant]
     Indication: BREAST CANCER
     Dosage: 1000 MG, Q3WK
     Route: 042
     Dates: start: 20110105, end: 20110203

REACTIONS (1)
  - NEUTROPENIA [None]
